FAERS Safety Report 7736735-2 (Version None)
Quarter: 2011Q3

REPORT INFORMATION
  Report Type: 
  Country: None (occurrence: None)
  Receive Date: 20110908
  Receipt Date: 20110826
  Transmission Date: 20111222
  Serious: Yes (Other)
  Sender: FDA-Public Use
  Company Number: PHHY2011JP20631

PATIENT
  Age: 40 Year
  Sex: Female

DRUGS (5)
  1. METHOTREXATE [Concomitant]
     Indication: PROPHYLAXIS AGAINST GRAFT VERSUS HOST DISEASE
  2. MELPHALAN [Concomitant]
  3. DRUG THERAPY NOS [Concomitant]
  4. CYCLOSPORINE [Suspect]
     Indication: PROPHYLAXIS AGAINST GRAFT VERSUS HOST DISEASE
  5. CYCLOSPORINE [Suspect]
     Indication: ALLOGENIC BONE MARROW TRANSPLANTATION THERAPY

REACTIONS (13)
  - BACK PAIN [None]
  - DYSPHAGIA [None]
  - PARAESTHESIA [None]
  - ACUTE GRAFT VERSUS HOST DISEASE IN SKIN [None]
  - ENDOCRINE DISORDER [None]
  - ANTI-THYROID ANTIBODY POSITIVE [None]
  - CSF PROTEIN INCREASED [None]
  - FEBRILE NEUTROPENIA [None]
  - CSF CELL COUNT INCREASED [None]
  - ASPIRATION [None]
  - INFECTION [None]
  - MYELITIS TRANSVERSE [None]
  - MUSCULAR WEAKNESS [None]
